FAERS Safety Report 6020423-7 (Version None)
Quarter: 2008Q4

REPORT INFORMATION
  Report Type: 
  Country: None (occurrence: None)
  Receive Date: 20081226
  Receipt Date: 20081217
  Transmission Date: 20090506
  Serious: Yes (Other)
  Sender: FDA-Public Use
  Company Number: TW-BAYER-200833136GPV

PATIENT
  Age: 40 Year
  Sex: Male

DRUGS (6)
  1. SORAFENIB [Suspect]
     Indication: HEPATIC NEOPLASM MALIGNANT NON-RESECTABLE
     Dosage: TOTAL DAILY DOSE: 800 MG
     Route: 065
  2. SORAFENIB [Suspect]
     Dosage: TOTAL DAILY DOSE: 400 MG
     Route: 065
  3. SORAFENIB [Suspect]
     Dosage: TOTAL DAILY DOSE: 200 MG
     Route: 065
  4. SORAFENIB [Suspect]
     Dosage: TOTAL DAILY DOSE: 400 MG
     Route: 065
  5. SORAFENIB [Suspect]
     Route: 065
  6. SORAFENIB [Suspect]
     Dosage: TOTAL DAILY DOSE: 800 MG
     Route: 065

REACTIONS (5)
  - ALOPECIA [None]
  - DERMATITIS [None]
  - PALMAR-PLANTAR ERYTHRODYSAESTHESIA SYNDROME [None]
  - PHOTOSENSITIVITY REACTION [None]
  - SKIN TOXICITY [None]
